FAERS Safety Report 5129909-0 (Version None)
Quarter: 2006Q4

REPORT INFORMATION
  Report Type: 
  Country: None (occurrence: None)
  Receive Date: 20061013
  Receipt Date: 20061002
  Transmission Date: 20070319
  Serious: Yes (Life-Threatening)
  Sender: FDA-Public Use
  Company Number: GB-2006-029091

PATIENT
  Age: 71 Year
  Sex: Male

DRUGS (2)
  1. ULTRAVIST 150 [Suspect]
     Indication: COMPUTERISED TOMOGRAM
     Dosage: 80 ML, 1 DOSE
     Dates: start: 20060908, end: 20060908
  2. ULTRAVIST (PHARMACY BULK) [Suspect]

REACTIONS (2)
  - ANAPHYLACTIC REACTION [None]
  - RESUSCITATION [None]
